FAERS Safety Report 18654801 (Version 5)
Quarter: 2021Q3

REPORT INFORMATION
  Report Type: Spontaneous
  Country: US (occurrence: US)
  Receive Date: 20201223
  Receipt Date: 20210929
  Transmission Date: 20211014
  Serious: No
  Sender: FDA-Public Use
  Company Number: US-PFIZER INC-2020500441

PATIENT
  Age: 14 Year
  Sex: Male
  Weight: 39.91 kg

DRUGS (1)
  1. GENOTROPIN [Suspect]
     Active Substance: SOMATROPIN
     Indication: GROWTH RETARDATION
     Dosage: UNK

REACTIONS (3)
  - Device operational issue [Unknown]
  - Drug dose omission by device [Unknown]
  - Device mechanical issue [Unknown]
